FAERS Safety Report 12586964 (Version 4)
Quarter: 2016Q3

REPORT INFORMATION
  Report Type: Spontaneous
  Country: US (occurrence: US)
  Receive Date: 20160725
  Receipt Date: 20160819
  Transmission Date: 20161109
  Serious: No
  Sender: FDA-Public Use
  Company Number: US-BEH-2016062496

PATIENT
  Weight: 79.38 kg

DRUGS (5)
  1. LMX [Concomitant]
     Active Substance: LIDOCAINE
  2. EPIPEN [Concomitant]
     Active Substance: EPINEPHRINE
  3. NEUPOGEN [Concomitant]
     Active Substance: FILGRASTIM
  4. HIZENTRA [Suspect]
     Active Substance: HUMAN IMMUNOGLOBULIN G
     Indication: PLASMA CELL MYELOMA
     Dosage: 10 G, QW
     Route: 058
  5. DIPHENHYDRAMINE. [Concomitant]
     Active Substance: DIPHENHYDRAMINE

REACTIONS (2)
  - Tooth infection [Unknown]
  - Tooth extraction [Unknown]
